FAERS Safety Report 12448044 (Version 1)
Quarter: 2016Q2

REPORT INFORMATION
  Report Type: Spontaneous
  Country: CN (occurrence: CN)
  Receive Date: 20160608
  Receipt Date: 20160608
  Transmission Date: 20160815
  Serious: Yes (Other)
  Sender: FDA-Public Use
  Company Number: CN-ASTRAZENECA-2016SE60300

PATIENT
  Age: 23376 Day
  Sex: Female

DRUGS (3)
  1. ESOMEPRAZOLE INJECTION [Suspect]
     Active Substance: ESOMEPRAZOLE
     Indication: GASTRIC CANCER
     Route: 041
     Dates: start: 20151105, end: 20151105
  2. SODIUM CHLORIDE. [Concomitant]
     Active Substance: SODIUM CHLORIDE
     Dosage: 100.0ML UNKNOWN
     Dates: start: 20151105
  3. DOCETAXEL. [Concomitant]
     Active Substance: DOCETAXEL

REACTIONS (3)
  - Speech disorder [Recovered/Resolved]
  - Tremor [Recovered/Resolved]
  - Loss of consciousness [Recovered/Resolved]

NARRATIVE: CASE EVENT DATE: 20151105
